FAERS Safety Report 13892885 (Version 1)
Quarter: 2017Q3

REPORT INFORMATION
  Report Type: Spontaneous
  Country: US (occurrence: US)
  Receive Date: 20170822
  Receipt Date: 20170822
  Transmission Date: 20171127
  Serious: No
  Sender: FDA-Public Use
  Company Number: US-ROCHE-1125907

PATIENT
  Sex: Female
  Weight: 71.8 kg

DRUGS (4)
  1. 5-FU [Concomitant]
     Active Substance: FLUOROURACIL
  2. HERCEPTIN [Suspect]
     Active Substance: TRASTUZUMAB
     Indication: BREAST CANCER
     Dosage: MAINTAINENCE DOSE AT 140MG
     Route: 042
     Dates: start: 19990115
  3. METHOTREXATE. [Concomitant]
     Active Substance: METHOTREXATE
  4. CYTOXAN [Concomitant]
     Active Substance: CYCLOPHOSPHAMIDE

REACTIONS (2)
  - Nausea [Unknown]
  - Fatigue [Unknown]
